FAERS Safety Report 14557907 (Version 3)
Quarter: 2018Q2

REPORT INFORMATION
  Report Type: Spontaneous
  Country: ES (occurrence: ES)
  Receive Date: 20180221
  Receipt Date: 20180405
  Transmission Date: 20180711
  Serious: Yes (Hospitalization, Other)
  Sender: FDA-Public Use
  Company Number: ES-PFIZER INC-2018068029

PATIENT
  Age: 58 Year
  Sex: Male
  Weight: 69 kg

DRUGS (2)
  1. TOPOTECAN HYDROCHLORIDE. [Suspect]
     Active Substance: TOPOTECAN HYDROCHLORIDE
     Indication: SMALL CELL LUNG CANCER
     Dosage: DOSE: 278 TOTAL DAILY DOSE
     Route: 041
     Dates: start: 20171218, end: 20171222
  2. BISOPROLOL [Concomitant]
     Active Substance: BISOPROLOL
     Indication: HYPERTENSION
     Dosage: 1.25 MG, TOTAL DAILY DOSE
     Dates: start: 20171023

REACTIONS (5)
  - Dyspnoea [Unknown]
  - Pleural effusion [Recovered/Resolved]
  - Pancytopenia [Recovered/Resolved]
  - Pyrexia [Unknown]
  - Productive cough [Unknown]

NARRATIVE: CASE EVENT DATE: 20171221
